FAERS Safety Report 5421025-3 (Version None)
Quarter: 2007Q3

REPORT INFORMATION
  Report Type: 
  Country: None (occurrence: None)
  Receive Date: 20070821
  Receipt Date: 20070817
  Transmission Date: 20080115
  Serious: Yes (Death)
  Sender: FDA-Public Use
  Company Number: A0580385A

PATIENT
  Age: 14 Year
  Sex: Male
  Weight: 48.6 kg

DRUGS (2)
  1. PAXIL [Suspect]
     Indication: DRUG USE FOR UNKNOWN INDICATION
     Route: 048
     Dates: start: 19981215
  2. MARIJUANA [Concomitant]

REACTIONS (3)
  - COMPLETED SUICIDE [None]
  - DRUG INEFFECTIVE [None]
  - INSOMNIA [None]
